FAERS Safety Report 19944686 (Version 1)
Quarter: 2021Q4

REPORT INFORMATION
  Report Type: Spontaneous
  Country: US (occurrence: US)
  Receive Date: 20211010
  Receipt Date: 20211010
  Transmission Date: 20220303
  Serious: Yes (unspecified)
  Sender: FDA-Public Use
  Company Number: None

PATIENT
  Age: 47 Year
  Sex: Male
  Weight: 72 kg

DRUGS (4)
  1. GLUCAGON [Suspect]
     Active Substance: GLUCAGON
     Indication: Hypoglycaemia
     Dosage: ?          QUANTITY:1 INJECTION(S);
     Route: 030
  2. HUMALOG [Concomitant]
     Active Substance: INSULIN LISPRO
  3. DEXCOM CONTINUOUS GLUCOSE MONITOR [Concomitant]
  4. DEVICE [Concomitant]
     Active Substance: DEVICE

REACTIONS (2)
  - Therapy non-responder [None]
  - Recalled product administered [None]

NARRATIVE: CASE EVENT DATE: 20211004
